FAERS Safety Report 12503440 (Version 1)
Quarter: 2016Q2

REPORT INFORMATION
  Report Type: Spontaneous
  Country: US (occurrence: US)
  Receive Date: 20160628
  Receipt Date: 20160628
  Transmission Date: 20160815
  Serious: No
  Sender: FDA-Public Use
  Company Number: US-PFIZER INC-2016293912

PATIENT
  Age: 49 Year
  Sex: Female

DRUGS (23)
  1. FEMRING [Concomitant]
     Active Substance: ESTRADIOL ACETATE
     Dosage: UNK
  2. ASPIRIN BAYER [Concomitant]
     Active Substance: ASPIRIN
     Dosage: 81 MG, 1X/DAY
  3. CLOBETASOL PROPIONATE. [Concomitant]
     Active Substance: CLOBETASOL PROPIONATE
     Dosage: UNK, 2X/DAY
  4. ADVAIR DISKUS [Concomitant]
     Active Substance: FLUTICASONE PROPIONATE\SALMETEROL XINAFOATE
     Dosage: 1 PUFF TWICE A DAY
     Route: 055
  5. ETODOLAC. [Concomitant]
     Active Substance: ETODOLAC
     Dosage: 400 MG, 2X/DAY (1 TABLET TWICE A DAY)
  6. OMEGA 3-6-9 [Concomitant]
     Active Substance: FISH OIL
     Dosage: UNK
  7. ACETAMINOPHEN\HYDROCODONE BITARTRATE [Concomitant]
     Active Substance: ACETAMINOPHEN\HYDROCODONE BITARTRATE
     Dosage: 1 TABLET AS NEEDED EVERY 6 HRS
  8. TRAZODONE HYDROCHLORIDE. [Concomitant]
     Active Substance: TRAZODONE HYDROCHLORIDE
     Dosage: 150 MG, AS NEEDED (1 TABLET AT BEDTIME AS NEEDED ONCE A DAY)
  9. BIOTIN [Concomitant]
     Active Substance: BIOTIN
     Dosage: 1000 UG, 1X/DAY
  10. GABAPENTIN. [Concomitant]
     Active Substance: GABAPENTIN
     Dosage: 600 MG, 3X/DAY
  11. DOVONEX [Concomitant]
     Active Substance: CALCIPOTRIENE
     Dosage: APPLICATION TO AFFECTED AREA QD
  12. TOPIRAMATE. [Concomitant]
     Active Substance: TOPIRAMATE
     Dosage: 50 MG, 3X/DAY (1 TABLET THREE A DAY)
  13. SAVELLA [Concomitant]
     Active Substance: MILNACIPRAN HYDROCHLORIDE
     Dosage: 50 MG, 2X/DAY (1 TABLET TWICE A DAY)
  14. MG217 [Concomitant]
     Dosage: UNK, 1X/DAY (2 % OINTMENT)
  15. LYRICA [Suspect]
     Active Substance: PREGABALIN
     Indication: FIBROMYALGIA
     Dosage: 150 MG, 2X/DAY
     Route: 048
  16. CYCLOBENZAPRINE HCL [Concomitant]
     Active Substance: CYCLOBENZAPRINE HYDROCHLORIDE
     Dosage: 7.5 MG, 3X/DAY (1 TABLET THREE TIMES A DAY)
  17. PAROXETINE HCL [Concomitant]
     Active Substance: PAROXETINE HYDROCHLORIDE
     Dosage: 40 MG, 1X/DAY (1 TABLET IN THE MORNING ONCE A DAY)
  18. TRIAMCINOLONE ACETONIDE. [Concomitant]
     Active Substance: TRIAMCINOLONE ACETONIDE
     Dosage: UNK, 2X/DAY
  19. VENTOLIN HFA [Concomitant]
     Active Substance: ALBUTEROL SULFATE
     Dosage: 2 PUFFS AS NEEDED EVERY 4 HRS
     Route: 055
  20. LEVOTHYROXINE SODIUM. [Concomitant]
     Active Substance: LEVOTHYROXINE SODIUM
     Dosage: 25 UG, 1X/DAY
  21. BETAMETHASONE DIPROPIONATE. [Concomitant]
     Active Substance: BETAMETHASONE DIPROPIONATE
     Dosage: UNK, 1X/DAY
  22. VITAMIN D [Concomitant]
     Active Substance: CHOLECALCIFEROL
     Dosage: 50000 IU, WEEKLY (1 CAPSULE TWICE A WEEK)
  23. UREALAC [Concomitant]
     Active Substance: UREA
     Dosage: APPLICATION TO AFFECTED AREA QD

REACTIONS (4)
  - Laceration [Unknown]
  - Skin exfoliation [Unknown]
  - Skin abrasion [Unknown]
  - Constipation [Unknown]
